FAERS Safety Report 15081847 (Version 2)
Quarter: 2019Q4

REPORT INFORMATION
  Report Type: Spontaneous
  Country: JP (occurrence: JP)
  Receive Date: 20180628
  Receipt Date: 20191125
  Transmission Date: 20200122
  Serious: Yes (Hospitalization, Other)
  Sender: FDA-Public Use
  Company Number: PHJP2018JP013003

PATIENT
  Age: 46 Year
  Sex: Female

DRUGS (1)
  1. EVEROLIMUS. [Suspect]
     Active Substance: EVEROLIMUS
     Indication: PRODUCT USED FOR UNKNOWN INDICATION
     Dosage: UNK
     Route: 065

REACTIONS (1)
  - Diabetic ketosis [Unknown]
